FAERS Safety Report 11220322 (Version 1)
Quarter: 2015Q2

REPORT INFORMATION
  Report Type: Spontaneous
  Country: FR (occurrence: None)
  Receive Date: 20150624
  Receipt Date: 20150624
  Transmission Date: 20150821
  Serious: Yes (Hospitalization, Other)
  Sender: FDA-Public Use
  Company Number: NL01PV15_39185

PATIENT
  Age: 40 Year
  Sex: Male

DRUGS (1)
  1. ZOLPIDEM [Suspect]
     Active Substance: ZOLPIDEM\ZOLPIDEM TARTRATE
     Indication: PRODUCT USED FOR UNKNOWN INDICATION
     Dosage: UNK (FILM-COATED TABLET)
     Route: 013

REACTIONS (5)
  - Peripheral ischaemia [None]
  - Product use issue [None]
  - Drug abuse [None]
  - Wrong technique in drug usage process [None]
  - Intentional product misuse [None]
